FAERS Safety Report 16082736 (Version 1)
Quarter: 2019Q1

REPORT INFORMATION
  Report Type: Spontaneous
  Country: US (occurrence: US)
  Receive Date: 20190318
  Receipt Date: 20190318
  Transmission Date: 20190418
  Serious: Yes (Life-Threatening, Hospitalization, Other)
  Sender: FDA-Public Use
  Company Number: US-AUROBINDO-AUR-APL-2019-014124

PATIENT

DRUGS (2)
  1. LOPERAMIDE 2MG [Suspect]
     Active Substance: LOPERAMIDE
     Dosage: 150 DOSAGE FORM, ONCE A DAY
     Route: 048
  2. LOPERAMIDE 2MG [Suspect]
     Active Substance: LOPERAMIDE
     Indication: PRODUCT USED FOR UNKNOWN INDICATION
     Dosage: 100 DOSAGE FORM, ONCE A DAY
     Route: 048

REACTIONS (8)
  - Tachycardia [Unknown]
  - Cardiotoxicity [Unknown]
  - Electrocardiogram abnormal [Unknown]
  - Electrocardiogram QT prolonged [Unknown]
  - Dizziness [Unknown]
  - Torsade de pointes [Recovered/Resolved]
  - Drug abuse [Unknown]
  - Cardio-respiratory arrest [Recovered/Resolved]
